FAERS Safety Report 6647583-9 (Version None)
Quarter: 2010Q1

REPORT INFORMATION
  Report Type: 
  Country: None (occurrence: None)
  Receive Date: 20100323
  Receipt Date: 20100323
  Transmission Date: 20100710
  Serious: Yes (Hospitalization)
  Sender: FDA-Public Use
  Company Number: None

PATIENT
  Age: 58 Year
  Sex: Male
  Weight: 44.77 kg

DRUGS (1)
  1. PACLITAXEL [Suspect]
     Dosage: 324 MG ONCE IV
     Route: 042
     Dates: start: 20090507, end: 20090507

REACTIONS (4)
  - HEADACHE [None]
  - HYPERTENSION [None]
  - NAUSEA [None]
  - VERTIGO [None]
